FAERS Safety Report 7291732-9 (Version None)
Quarter: 2011Q1

REPORT INFORMATION
  Report Type: 
  Country: None (occurrence: None)
  Receive Date: 20110202
  Receipt Date: 20110118
  Transmission Date: 20110831
  Serious: Yes (Other)
  Sender: FDA-Public Use
  Company Number: 1000018563

PATIENT
  Age: 84 Year
  Sex: Male

DRUGS (4)
  1. MEMANTINE [Suspect]
     Dosage: 10 MG(10 MG), 1 IN 1 D, ORAL
     Route: 048
  2. MEMANTINE [Suspect]
     Dosage: 5MG(5 MG, 1 IN 1 D), OAL
     Route: 048
  3. ANTIDEPRESSANTS [Concomitant]
  4. MEMANTINE [Suspect]
     Dosage: (5 MG (5 MG, 1 IN 1 D), ORAL)
     Route: 048

REACTIONS (2)
  - AGGRESSION [None]
  - DELIRIUM [None]
